FAERS Safety Report 6985898-5 (Version None)
Quarter: 2010Q3

REPORT INFORMATION
  Report Type: 
  Country: None (occurrence: None)
  Receive Date: 20100827
  Receipt Date: 20100712
  Transmission Date: 20110219
  Serious: No
  Sender: FDA-Public Use
  Company Number: 015349

PATIENT
  Age: 46 Year
  Sex: Female

DRUGS (4)
  1. LACOSAMIDE [Suspect]
     Indication: PARTIAL SEIZURES
     Dosage: 50 MG BID, 2 TABLETS IN THE MORNING AND 3 TABLETS IN THE EVENING), (1-1/2 TABLETS IN THE MORNING AND
     Dates: start: 20090101
  2. VITAMINS, OTHER COMBINATIONS [Concomitant]
  3. FISH OIL [Concomitant]
  4. CALCIUM W/VITAMIN D /00188401/ [Concomitant]

REACTIONS (8)
  - CONCUSSION [None]
  - CONVULSION [None]
  - DEFAECATION URGENCY [None]
  - FATIGUE [None]
  - HEADACHE [None]
  - MEMORY IMPAIRMENT [None]
  - PALPITATIONS [None]
  - VOMITING [None]
